FAERS Safety Report 20608515 (Version 1)
Quarter: 2022Q1

REPORT INFORMATION
  Report Type: Spontaneous
  Country: US (occurrence: None)
  Receive Date: 20220317
  Receipt Date: 20220317
  Transmission Date: 20220423
  Serious: No
  Sender: FDA-Public Use
  Company Number: None

PATIENT
  Sex: Female
  Weight: 67.13 kg

DRUGS (13)
  1. SUNITINIB MALATE [Suspect]
     Active Substance: SUNITINIB MALATE
     Indication: Renal cancer
     Dosage: OTHER FREQUENCY : QD, 4WK,2WK OF;?
     Route: 048
  2. CYCLOBENZAPRINE [Concomitant]
  3. NEUROTIN [Concomitant]
  4. PROZAC [Concomitant]
     Active Substance: FLUOXETINE HYDROCHLORIDE
  5. PROVENTIL [Concomitant]
     Active Substance: ALBUTEROL
  6. SYMBICORT [Concomitant]
  7. SUTENT [Concomitant]
     Active Substance: SUNITINIB MALATE
  8. AMLODIPINE [Concomitant]
     Active Substance: AMLODIPINE BESYLATE
  9. MELATONIN [Concomitant]
     Active Substance: MELATONIN
  10. BIOTIN [Concomitant]
     Active Substance: BIOTIN
  11. TRAMADOL [Concomitant]
     Active Substance: TRAMADOL
  12. PEPCID [Concomitant]
     Active Substance: FAMOTIDINE
  13. ONDANSETRON [Concomitant]
     Active Substance: ONDANSETRON

REACTIONS (2)
  - Malaise [None]
  - Therapy interrupted [None]
